FAERS Safety Report 24420645 (Version 1)
Quarter: 2024Q4

REPORT INFORMATION
  Report Type: Spontaneous
  Country: CA (occurrence: CA)
  Receive Date: 20241010
  Receipt Date: 20241010
  Transmission Date: 20250114
  Serious: Yes (Other)
  Sender: GALDERMA
  Company Number: CA-GALDERMA-CA2024014763

PATIENT

DRUGS (5)
  1. DOXYCYCLINE [Suspect]
     Active Substance: DOXYCYCLINE
     Indication: Mycobacterium chelonae infection
     Dosage: UNK DOSAGE FORM
     Route: 065
  2. CEFOXITIN [Concomitant]
     Active Substance: CEFOXITIN SODIUM
     Indication: Mycobacterium chelonae infection
     Dosage: UNK DOSAGE FORM
     Route: 065
  3. MEROPENEM [Concomitant]
     Active Substance: MEROPENEM
     Indication: Mycobacterium chelonae infection
     Dosage: 1 UNK, POWDERED SOLUTION
     Route: 042
  4. MOXIFLOXACIN [Concomitant]
     Active Substance: MOXIFLOXACIN
     Indication: Mycobacterium chelonae infection
     Dosage: UNK DOSAGE FORM
     Route: 065
  5. SULFATRIM [Concomitant]
     Active Substance: SULFAMETHOXAZOLE\TRIMETHOPRIM
     Indication: Mycobacterium chelonae infection
     Dosage: UNK DOSAGE FORM
     Route: 065

REACTIONS (2)
  - Drug resistance [Unknown]
  - Intentional product use issue [Recovered/Resolved]
